FAERS Safety Report 11194016 (Version 2)
Quarter: 2015Q3

REPORT INFORMATION
  Report Type: Spontaneous
  Country: US (occurrence: US)
  Receive Date: 20150616
  Receipt Date: 20150806
  Transmission Date: 20151125
  Serious: No
  Sender: FDA-Public Use
  Company Number: US-TEVA-569587USA

PATIENT
  Age: 26 Year
  Sex: Female

DRUGS (5)
  1. DRISDOL [Concomitant]
     Active Substance: ERGOCALCIFEROL
  2. LEVONORGESTREL. [Concomitant]
     Active Substance: LEVONORGESTREL
  3. LEVOTHYROXINE. [Concomitant]
     Active Substance: LEVOTHYROXINE
  4. BIFERARX [Concomitant]
     Active Substance: CYANOCOBALAMIN\FOLIC ACID\HEME IRON POLYPEPTIDE\IRON DEXTRAN
     Dosage: 22-6-1-0.025 MG
  5. CLARAVIS [Suspect]
     Active Substance: ISOTRETINOIN
     Dates: start: 20150221, end: 20150321

REACTIONS (3)
  - Arthralgia [Recovered/Resolved]
  - Cheilitis [Unknown]
  - Dry skin [Unknown]

NARRATIVE: CASE EVENT DATE: 20150422
